FAERS Safety Report 26068629 (Version 1)
Quarter: 2025Q4

REPORT INFORMATION
  Report Type: Spontaneous
  Country: EU (occurrence: EU)
  Receive Date: 20251120
  Receipt Date: 20251120
  Transmission Date: 20260117
  Serious: Yes (Hospitalization)
  Sender: NOVARTIS
  Company Number: EU-002147023-NVSC2025DE176380

PATIENT
  Age: 87 Year
  Sex: Male
  Weight: 62 kg

DRUGS (3)
  1. PLUVICTO [Suspect]
     Active Substance: LUTETIUM LU-177 VIPIVOTIDE TETRAXETAN
     Indication: Prostate cancer
     Dosage: UNK, ONCE/SINGLE
     Route: 065
     Dates: start: 20250610, end: 20250610
  2. PLUVICTO [Suspect]
     Active Substance: LUTETIUM LU-177 VIPIVOTIDE TETRAXETAN
     Indication: Metastases to bone
     Dosage: UNK, ONCE/SINGLE
     Route: 065
     Dates: start: 20250721, end: 20250721
  3. PLUVICTO [Suspect]
     Active Substance: LUTETIUM LU-177 VIPIVOTIDE TETRAXETAN
     Dosage: UNK, ONCE/SINGLE
     Route: 065
     Dates: start: 20250902, end: 20250902

REACTIONS (2)
  - Arthritis [Recovered/Resolved]
  - C-reactive protein increased [Recovering/Resolving]

NARRATIVE: CASE EVENT DATE: 20251007
